FAERS Safety Report 6656461-0 (Version None)
Quarter: 2010Q1

REPORT INFORMATION
  Report Type: 
  Country: None (occurrence: None)
  Receive Date: 20100329
  Receipt Date: 20100315
  Transmission Date: 20100710
  Serious: Yes (Other)
  Sender: FDA-Public Use
  Company Number: GB-MYLANLABS-2010S1004510

PATIENT
  Age: 51 Year
  Sex: Male

DRUGS (4)
  1. LAMOTRIGINE [Suspect]
     Indication: BIPOLAR DISORDER
     Route: 048
     Dates: start: 20091101
  2. QUETIAPINE [Concomitant]
     Indication: DRUG USE FOR UNKNOWN INDICATION
  3. TRANYLCYPROMINE SULFATE [Concomitant]
     Indication: DRUG USE FOR UNKNOWN INDICATION
  4. DIPHENHYDRAMINE HYDROCHLORIDE [Concomitant]
     Indication: DERMATITIS

REACTIONS (5)
  - DERMATITIS [None]
  - MOUTH ULCERATION [None]
  - NEUTROPENIA [None]
  - ORAL PAIN [None]
  - SKIN CHAPPED [None]
